FAERS Safety Report 20683480 (Version 1)
Quarter: 2022Q2

REPORT INFORMATION
  Report Type: Spontaneous
  Country: PT (occurrence: PT)
  Receive Date: 20220407
  Receipt Date: 20220407
  Transmission Date: 20220721
  Serious: Yes (Hospitalization, Other)
  Sender: FDA-Public Use
  Company Number: PT-MYLANLABS-2022M1013987

PATIENT
  Age: 77 Year
  Sex: Female

DRUGS (4)
  1. CIPROFLOXACIN [Interacting]
     Active Substance: CIPROFLOXACIN
     Indication: Urosepsis
     Dosage: UNK
  2. FLUCONAZOLE [Interacting]
     Active Substance: FLUCONAZOLE
     Dosage: UNK
  3. AMOXICILLIN\CLAVULANIC ACID [Interacting]
     Active Substance: AMOXICILLIN\CLAVULANIC ACID
     Indication: Urosepsis
     Dosage: UNK
  4. PIPERACILLIN SODIUM\TAZOBACTAM SODIUM [Interacting]
     Active Substance: PIPERACILLIN SODIUM\TAZOBACTAM SODIUM
     Indication: Urosepsis
     Dosage: UNK

REACTIONS (11)
  - Electrocardiogram abnormal [Unknown]
  - Nodal rhythm [Unknown]
  - Bradycardia [Unknown]
  - Heart rate decreased [Unknown]
  - Cardiotoxicity [Unknown]
  - Ventricular extrasystoles [Unknown]
  - Ventricular extrasystoles [Unknown]
  - Pyrexia [Unknown]
  - Drug interaction [Unknown]
  - Drug ineffective [Unknown]
  - Drug ineffective [Unknown]
